FAERS Safety Report 4610017-X (Version None)
Quarter: 2005Q1

REPORT INFORMATION
  Report Type: 
  Country: None (occurrence: None)
  Receive Date: 20050316
  Receipt Date: 20050310
  Transmission Date: 20050727
  Serious: Yes (Hospitalization)
  Sender: FDA-Public Use
  Company Number: US-JNJFOC-20050302814

PATIENT
  Age: 66 Year
  Sex: Male

DRUGS (4)
  1. LEVAQUIN [Suspect]
     Indication: DRUG USE FOR UNKNOWN INDICATION
  2. FLAGYL [Suspect]
     Indication: DRUG USE FOR UNKNOWN INDICATION
  3. GEMZAR [Suspect]
  4. DOCETAXEL [Suspect]

REACTIONS (1)
  - ENTEROCOLITIS [None]
